FAERS Safety Report 7068079-9 (Version None)
Quarter: 2010Q4

REPORT INFORMATION
  Report Type: 
  Country: None (occurrence: None)
  Receive Date: 20101028
  Receipt Date: 20101021
  Transmission Date: 20110411
  Serious: Yes (Life-Threatening, Other)
  Sender: FDA-Public Use
  Company Number: JP-ROCHE-723715

PATIENT
  Sex: Female
  Weight: 55 kg

DRUGS (15)
  1. AVASTIN [Suspect]
     Indication: COLON CANCER
     Dosage: DOSE: 280 MG.
     Route: 041
     Dates: start: 20090902, end: 20100602
  2. OXALIPLATIN [Concomitant]
     Route: 042
     Dates: start: 20090902
  3. FLUOROURACIL [Concomitant]
     Dosage: FORM: INTRAVENOUS BOLUS.
     Route: 050
     Dates: start: 20090902
  4. FLUOROURACIL [Concomitant]
     Route: 050
     Dates: start: 20090902
  5. LEUCOVORIN CALCIUM [Concomitant]
     Route: 042
     Dates: start: 20090902
  6. MAGNESIUM OXIDE [Concomitant]
     Dosage: FORM: POWDERED MEDICINE.
     Dates: start: 20060803, end: 20090729
  7. GASMOTIN [Concomitant]
     Route: 048
     Dates: start: 20060803, end: 20090729
  8. DAI-KENCHU-TO [Concomitant]
     Dosage: PERORAL AGENT.
     Route: 048
     Dates: start: 20060803, end: 20090729
  9. ALDACTONE [Concomitant]
     Route: 048
     Dates: start: 20070329, end: 20091021
  10. ALDACTONE [Concomitant]
     Route: 048
     Dates: start: 20091021
  11. VOLTAREN [Concomitant]
     Route: 048
     Dates: start: 20090909, end: 20091118
  12. TAKEPRON [Concomitant]
     Route: 048
     Dates: start: 20090909
  13. LASIX [Concomitant]
     Route: 048
     Dates: start: 20091021
  14. LOXONIN [Concomitant]
     Route: 048
     Dates: start: 20091118
  15. 8-HOUR BAYER [Concomitant]
     Route: 048
     Dates: start: 20100120

REACTIONS (4)
  - ABSCESS [None]
  - DISSEMINATED INTRAVASCULAR COAGULATION [None]
  - INTESTINAL PERFORATION [None]
  - PYOTHORAX [None]
